FAERS Safety Report 15010090 (Version 1)
Quarter: 2018Q2

REPORT INFORMATION
  Report Type: Spontaneous
  Country: US (occurrence: US)
  Receive Date: 20180614
  Receipt Date: 20180614
  Transmission Date: 20180711
  Serious: No
  Sender: FDA-Public Use
  Company Number: US-PFIZER INC-2018238981

PATIENT
  Age: 67 Year
  Sex: Female
  Weight: 52.16 kg

DRUGS (5)
  1. ALPRAZOLAM. [Suspect]
     Active Substance: ALPRAZOLAM
     Indication: NEOPLASM MALIGNANT
     Dosage: UNK UNK, 3X/DAY (1.5 MG DOSE TABLET THREE TIMES A DAY )
     Route: 048
  2. EFFEXOR [Concomitant]
     Active Substance: VENLAFAXINE HYDROCHLORIDE
     Indication: DEPRESSION
     Dosage: UNK
  3. ALPRAZOLAM. [Suspect]
     Active Substance: ALPRAZOLAM
     Indication: DEPRESSION
     Dosage: 0.5 MG, 3X/DAY
  4. ALPRAZOLAM. [Suspect]
     Active Substance: ALPRAZOLAM
     Indication: ANXIETY
     Dosage: 1 MG, 3X/DAY
  5. GILOTRIF [Concomitant]
     Active Substance: AFATINIB
     Dosage: 1 MG, UNK

REACTIONS (2)
  - Overdose [Unknown]
  - Abdominal discomfort [Unknown]
